FAERS Safety Report 5881549-1 (Version None)
Quarter: 2008Q3

REPORT INFORMATION
  Report Type: 
  Country: None (occurrence: None)
  Receive Date: 20080912
  Receipt Date: 20080701
  Transmission Date: 20090109
  Serious: No
  Sender: FDA-Public Use
  Company Number: US-ABBOTT-08P-163-0460653-00

PATIENT
  Sex: Female
  Weight: 91 kg

DRUGS (14)
  1. HUMIRA [Suspect]
     Indication: RHEUMATOID ARTHRITIS
     Route: 058
     Dates: start: 20080624
  2. METFORMIN HCL [Concomitant]
     Indication: DIABETES MELLITUS
     Route: 048
     Dates: start: 19980101
  3. JENUVIA [Concomitant]
     Indication: DIABETES MELLITUS
     Route: 048
     Dates: start: 20060101
  4. DICLOFENAC DIETHYLAMINE [Concomitant]
     Indication: RHEUMATOID ARTHRITIS
     Route: 048
     Dates: start: 20060101
  5. DICLOFENAC DIETHYLAMINE [Concomitant]
     Indication: PAIN
  6. RABEPRAZOLE SODIUM [Concomitant]
     Indication: GASTROOESOPHAGEAL REFLUX DISEASE
     Route: 048
     Dates: start: 20030101
  7. MONTELUKAST SODIUM [Concomitant]
     Indication: HYPERSENSITIVITY
     Route: 048
     Dates: start: 20030101
  8. CETIRIZINE HYDROCHLORIDE [Concomitant]
     Indication: HYPERSENSITIVITY
     Route: 048
  9. DIOVAN HCT [Concomitant]
     Indication: BLOOD PRESSURE
     Route: 048
     Dates: start: 20050101
  10. HYDROXYZINE [Concomitant]
     Indication: HYPERSENSITIVITY
     Route: 048
  11. HYDROXYZINE [Concomitant]
     Indication: ANXIETY
  12. PREDNISONE TAB [Concomitant]
     Indication: DRUG USE FOR UNKNOWN INDICATION
     Route: 048
     Dates: start: 20080717
  13. MOMETASONE FUROATE [Concomitant]
     Indication: DRUG USE FOR UNKNOWN INDICATION
     Dates: start: 20040101
  14. NEBULIZER-ALBERTEROL AND IPATROPIUM [Concomitant]
     Indication: DRUG USE FOR UNKNOWN INDICATION
     Route: 055
     Dates: start: 20040101

REACTIONS (2)
  - INJECTION SITE HAEMORRHAGE [None]
  - PROCEDURAL COMPLICATION [None]
